FAERS Safety Report 4731221-6 (Version None)
Quarter: 2005Q3

REPORT INFORMATION
  Report Type: 
  Country: None (occurrence: None)
  Receive Date: 20050802
  Receipt Date: 20050721
  Transmission Date: 20060218
  Serious: Yes (Hospitalization, Other)
  Sender: FDA-Public Use
  Company Number: GB-JNJFOC-20050704560

PATIENT
  Sex: Male
  Weight: 66 kg

DRUGS (9)
  1. REMICADE [Suspect]
     Indication: RHEUMATOID ARTHRITIS
     Route: 042
  2. ROFECOXIB [Concomitant]
     Route: 065
  3. CALCIUM D3 [Concomitant]
     Route: 065
  4. METHOTREXATE [Concomitant]
     Route: 065
  5. FOLIC ACID [Concomitant]
     Route: 065
  6. FERROUS GLUCONATE [Concomitant]
  7. OMEPRAZOLE [Concomitant]
  8. MELOXICAM [Concomitant]
  9. NIFEDIPINE [Concomitant]

REACTIONS (3)
  - ILIUM FRACTURE [None]
  - LOWER RESPIRATORY TRACT INFECTION [None]
  - STAPHYLOCOCCAL INFECTION [None]
